FAERS Safety Report 5507584-0 (Version None)
Quarter: 2007Q4

REPORT INFORMATION
  Report Type: 
  Country: None (occurrence: None)
  Receive Date: 20071105
  Receipt Date: 20071105
  Transmission Date: 20080405
  Serious: Yes (Hospitalization)
  Sender: FDA-Public Use
  Company Number: None

PATIENT
  Sex: Male
  Weight: 59 kg

DRUGS (4)
  1. FLUOROURACIL [Suspect]
     Dosage: 5040 MG
  2. ERBITUX [Suspect]
     Dosage: 450 MG
  3. LEUCOVORIN CALCIUM [Suspect]
     Dosage: 720 MG
  4. ELOXATIN [Suspect]
     Dosage: 153 MG

REACTIONS (8)
  - ASTHENIA [None]
  - CONSTIPATION [None]
  - FALL [None]
  - HAEMATEMESIS [None]
  - LOSS OF CONSCIOUSNESS [None]
  - MUSCULOSKELETAL PAIN [None]
  - SYNCOPE [None]
  - VOMITING [None]
